FAERS Safety Report 14250228 (Version 1)
Quarter: 2017Q4

REPORT INFORMATION
  Report Type: Report from Study
  Country: NL (occurrence: NL)
  Receive Date: 20171205
  Receipt Date: 20171205
  Transmission Date: 20180321
  Serious: Yes (Hospitalization, Other)
  Sender: FDA-Public Use
  Company Number: NL-ROCHE-669448

PATIENT

DRUGS (5)
  1. CYCLOPHOSPHAMIDE. [Suspect]
     Active Substance: CYCLOPHOSPHAMIDE
     Indication: B-CELL LYMPHOMA RECURRENT
     Route: 042
  2. VINCRISTINE [Suspect]
     Active Substance: VINCRISTINE
     Indication: B-CELL LYMPHOMA RECURRENT
     Route: 042
  3. PREDNISONE. [Suspect]
     Active Substance: PREDNISONE
     Indication: B-CELL LYMPHOMA RECURRENT
     Dosage: DAY1-5, EVERY 3 WEEKS
     Route: 048
  4. RITUXIMAB. [Suspect]
     Active Substance: RITUXIMAB
     Indication: B-CELL LYMPHOMA RECURRENT
     Dosage: DAY 1 OF EACH CYCLE
     Route: 042
  5. DOXORUBICIN [Suspect]
     Active Substance: DOXORUBICIN
     Indication: B-CELL LYMPHOMA RECURRENT
     Route: 042

REACTIONS (15)
  - Infection [Unknown]
  - Pleurisy [Unknown]
  - Hypersensitivity [Unknown]
  - Immune system disorder [Unknown]
  - Neutropenia [Unknown]
  - Reticuloendothelial dysfunction [Unknown]
  - Pneumonia [Unknown]
  - Shock [Unknown]
  - Ventricular arrhythmia [Unknown]
  - Skin reaction [Unknown]
  - Cardiac failure [Unknown]
  - Angina pectoris [Unknown]
  - Febrile neutropenia [Unknown]
  - Asthma [Unknown]
  - Bronchitis [Unknown]
